FAERS Safety Report 4799013-X (Version None)
Quarter: 2005Q4

REPORT INFORMATION
  Report Type: 
  Country: None (occurrence: None)
  Receive Date: 20051013
  Receipt Date: 20051006
  Transmission Date: 20060501
  Serious: Yes (Hospitalization)
  Sender: FDA-Public Use
  Company Number: 200512283BCC

PATIENT
  Age: 75 Year
  Sex: Female
  Weight: 81.6475 kg

DRUGS (2)
  1. ALKA-SELTZER PLUS EFFERVESCENT COLD + COUGH [Suspect]
     Indication: COUGH
     Dosage: IRR, ORAL
     Route: 048
     Dates: start: 20041201
  2. ALKA-SELTZER PLUS EFFERVESCENT COLD + COUGH [Suspect]
     Indication: NASOPHARYNGITIS
     Dosage: IRR, ORAL
     Route: 048
     Dates: start: 20041201

REACTIONS (1)
  - CEREBROVASCULAR ACCIDENT [None]
